FAERS Safety Report 16701997 (Version 1)
Quarter: 2019Q3

REPORT INFORMATION
  Report Type: Spontaneous
  Country: GB (occurrence: GB)
  Receive Date: 20190813
  Receipt Date: 20190813
  Transmission Date: 20191004
  Serious: Yes (Hospitalization, Disabling)
  Sender: FDA-Public Use
  Company Number: None

PATIENT
  Age: 25 Year
  Sex: Female
  Weight: 56 kg

DRUGS (1)
  1. ELOCON [Suspect]
     Active Substance: MOMETASONE FUROATE
     Indication: ECZEMA
     Route: 061
     Dates: start: 20140101, end: 20190410

REACTIONS (6)
  - Hyperhidrosis [None]
  - Alopecia [None]
  - Weight decreased [None]
  - Stress [None]
  - Dermatitis [None]
  - Body temperature fluctuation [None]

NARRATIVE: CASE EVENT DATE: 20190410
